FAERS Safety Report 7808432-6 (Version None)
Quarter: 2011Q4

REPORT INFORMATION
  Report Type: 
  Country: None (occurrence: None)
  Receive Date: 20111012
  Receipt Date: 20110929
  Transmission Date: 20120403
  Serious: Yes (Hospitalization, Other)
  Sender: FDA-Public Use
  Company Number: US-JNJFOC-20111000577

PATIENT
  Sex: Male
  Weight: 84.37 kg

DRUGS (9)
  1. NEURONTIN [Concomitant]
     Indication: MIGRAINE PROPHYLAXIS
     Route: 048
     Dates: start: 20030101
  2. LIPITOR [Concomitant]
     Indication: BLOOD CHOLESTEROL
     Route: 048
     Dates: start: 20030101
  3. BUSPAR [Concomitant]
     Indication: ANXIETY
     Route: 048
     Dates: start: 20030101
  4. ETODOLAC [Concomitant]
     Indication: ARTHRITIS
     Route: 048
     Dates: start: 20040101
  5. REMICADE [Suspect]
     Indication: CROHN'S DISEASE
     Route: 042
     Dates: start: 20040101
  6. HYOSCYAMINE [Concomitant]
     Indication: ABDOMINAL PAIN
     Route: 048
     Dates: start: 20040101
  7. VITAMIN TAB [Concomitant]
     Indication: NUTRITIONAL SUPPORT
  8. EFFEXOR XR [Concomitant]
     Indication: DEPRESSION
     Route: 048
     Dates: start: 20030101
  9. PROVIGIL [Concomitant]
     Indication: POOR QUALITY SLEEP
     Route: 048
     Dates: start: 20040101

REACTIONS (14)
  - CHEST PAIN [None]
  - ANAEMIA [None]
  - GASTROOESOPHAGEAL REFLUX DISEASE [None]
  - ABDOMINAL PAIN [None]
  - MYALGIA [None]
  - RESTLESS LEGS SYNDROME [None]
  - FLATULENCE [None]
  - DYSURIA [None]
  - ERECTILE DYSFUNCTION [None]
  - HAEMORRHOIDAL HAEMORRHAGE [None]
  - CORONARY ARTERIAL STENT INSERTION [None]
  - DIARRHOEA [None]
  - NASAL CONGESTION [None]
  - ADVERSE EVENT [None]
